FAERS Safety Report 13531267 (Version 3)
Quarter: 2019Q3

REPORT INFORMATION
  Report Type: Spontaneous
  Country: US (occurrence: US)
  Receive Date: 20170510
  Receipt Date: 20190822
  Transmission Date: 20191004
  Serious: No
  Sender: FDA-Public Use
  Company Number: US-PFIZER INC-2017169056

PATIENT
  Age: 67 Year
  Sex: Male
  Weight: 95 kg

DRUGS (51)
  1. HYGROTON [Concomitant]
     Active Substance: CHLORTHALIDONE
     Dosage: 25 MG, DAILY
     Route: 048
  2. ZESTRIL [Concomitant]
     Active Substance: LISINOPRIL
     Dosage: 10 MG, DAILY
     Route: 048
  3. WELLBUTRIN XL [Concomitant]
     Active Substance: BUPROPION HYDROCHLORIDE
     Dosage: 300 MG, 1X/DAY (EVERY MORNING)
     Route: 048
  4. BREO ELLIPTA [Concomitant]
     Active Substance: FLUTICASONE FUROATE\VILANTEROL TRIFENATATE
     Dosage: 1 DF, DAILY (FLUTICASONE FUROATE: 100 MCG/VILANTEROL TRIFENATATE: 25MCG, TAKE 1 PUFF)
     Route: 055
  5. ZANAFLEX [Concomitant]
     Active Substance: TIZANIDINE HYDROCHLORIDE
     Indication: MUSCLE SPASMS
     Dosage: 4 MG, AS NEEDED (TK 1 T PO EVERY 6 HOURS PRN )
     Route: 048
  6. WELLBUTRIN [Concomitant]
     Active Substance: BUPROPION HYDROCHLORIDE
     Dosage: UNK
  7. CAPSAICIN. [Concomitant]
     Active Substance: CAPSAICIN
     Dosage: UNK
  8. CLOBETASOL [Concomitant]
     Active Substance: CLOBETASOL
     Dosage: UNK
  9. FENTANYL CITRATE. [Concomitant]
     Active Substance: FENTANYL CITRATE
     Dosage: UNK
  10. FLUOXETINE [Concomitant]
     Active Substance: FLUOXETINE HYDROCHLORIDE
     Dosage: UNK
  11. LISINOPRIL/HYDROCHLOORTHIAZIDE [Concomitant]
     Active Substance: HYDROCHLOROTHIAZIDE\LISINOPRIL
     Dosage: UNK
  12. VIAGRA [Concomitant]
     Active Substance: SILDENAFIL CITRATE
     Indication: ERECTILE DYSFUNCTION
     Dosage: 100 MG, AS NEEDED
     Route: 048
     Dates: start: 20170221
  13. ROXICODONE [Concomitant]
     Active Substance: OXYCODONE HYDROCHLORIDE
     Indication: PAIN
     Dosage: 5 MG, AS NEEDED (EVERY FOUR HOURS)
     Route: 048
  14. DECADRON [Concomitant]
     Active Substance: DEXAMETHASONE
     Dosage: 9 MG, DAILY (3 TABLETS IN AM, 3 TABLETS IN PM FIRST DAY)
  15. PROTONIX [Concomitant]
     Active Substance: PANTOPRAZOLE SODIUM
     Dosage: 40 MG, UNK
  16. PROMETHAZINE VC WITH CODEINE [Concomitant]
     Active Substance: CODEINE PHOSPHATE\PHENYLEPHRINE HYDROCHLORIDE\PROMETHAZINE HYDROCHLORIDE
     Dosage: 5 ML, EVERY SIX (6) HOURS AS NEEDED ((STRENGTH: 6.25-5.10/5 MG/ML)
     Route: 048
  17. FLOMAX [Concomitant]
     Active Substance: TAMSULOSIN HYDROCHLORIDE
     Dosage: 0.4 MG, 1X/DAY (TAKE 1 CAP BY MOUTH NIGHTLY)
     Route: 048
  18. CLONAZEPAM. [Concomitant]
     Active Substance: CLONAZEPAM
     Dosage: UNK
  19. MYCOSTATIN [Concomitant]
     Active Substance: NYSTATIN
     Dosage: UNK, 2X/DAY (APPLY TO AFFECTED AREA)
     Route: 061
  20. KLONOPIN [Concomitant]
     Active Substance: CLONAZEPAM
     Dosage: 1 MG, UNK
  21. ATIVAN [Concomitant]
     Active Substance: LORAZEPAM
     Dosage: 1 MG, UNK (TAKE 1 TABLET BY MOUTH 2 HOURS)
     Route: 048
  22. LASIX [Concomitant]
     Active Substance: FUROSEMIDE
     Dosage: 40 MG, DAILY
     Route: 048
  23. TEMOVATE [Concomitant]
     Active Substance: CLOBETASOL PROPIONATE
     Dosage: UNK UNK, 2X/DAY (APPLY TO AFFECTED AREA TWICE DAILY)
     Route: 061
  24. K-DUR [Concomitant]
     Active Substance: POTASSIUM CHLORIDE
     Dosage: 20 MEQ, 2X/DAY
     Route: 048
  25. KLOR-CON [Concomitant]
     Active Substance: POTASSIUM CHLORIDE
     Dosage: 20 MEQ, 2X/DAY
     Route: 048
  26. DECADRON [Concomitant]
     Active Substance: DEXAMETHASONE
     Dosage: 7.5 MG, DAILY (3 TABLETS IN AM 2 TABLETS IN PM SECOND DAY)
  27. DECADRON [Concomitant]
     Active Substance: DEXAMETHASONE
     Dosage: 1.5 MG, DAILY (IN AM ON THE SIX DAY)
  28. PROVENTIL HFA [Concomitant]
     Active Substance: ALBUTEROL SULFATE
     Indication: WHEEZING
     Dosage: 1 DF, AS NEEDED  (TAKE 1 PUFF BY INHALATION EVERY FOUR (4) HOURS AS NEEDED )
     Route: 055
  29. VENTOLIN HFA [Concomitant]
     Active Substance: ALBUTEROL SULFATE
     Indication: WHEEZING
     Dosage: 1 DF, AS NEEDED  (TAKE 1 PUFF BY INHALATION EVERY FOUR (4) HOURS AS NEEDED )
     Route: 055
  30. MYCOSTATIN [Concomitant]
     Active Substance: NYSTATIN
     Dosage: 5 ML, 4X/DAY
     Route: 048
  31. FAMOTIDINE. [Concomitant]
     Active Substance: FAMOTIDINE
     Dosage: UNK
  32. DOCUSATE PLUS SENNA [Concomitant]
     Active Substance: DOCUSATE SODIUM\SENNOSIDES A AND B
     Dosage: UNK
  33. CYMBALTA [Concomitant]
     Active Substance: DULOXETINE HYDROCHLORIDE
     Dosage: 60 MG, 2X/DAY
     Route: 048
  34. ZYLOPRIM [Concomitant]
     Active Substance: ALLOPURINOL
     Dosage: 100 MG, DAILY
     Route: 048
  35. VESICARE [Concomitant]
     Active Substance: SOLIFENACIN SUCCINATE
     Dosage: 5 MG, 1X/DAY
     Route: 048
  36. PROAIR HFA [Concomitant]
     Active Substance: ALBUTEROL SULFATE
     Indication: WHEEZING
     Dosage: 1 DF, AS NEEDED [ (TAKE 1 PUFF BY INHALATION EVERY FOUR (4) HOURS AS NEEDED )]
     Route: 055
  37. NYSTATIN. [Concomitant]
     Active Substance: NYSTATIN
     Dosage: UNK
  38. OXYCODONE [Concomitant]
     Active Substance: OXYCODONE
     Dosage: UNK
  39. LYRICA [Suspect]
     Active Substance: PREGABALIN
     Indication: PAIN
     Dosage: 100 MG, 2X/DAY
     Route: 048
     Dates: start: 20170221
  40. CAPZASIN HP ARTHRITIS PAIN RELIEF [Concomitant]
     Active Substance: CAPSAICIN
     Dosage: UNK, 3X/DAY (APPLY TO AFFECTED AREA)
     Route: 061
  41. DECADRON [Concomitant]
     Active Substance: DEXAMETHASONE
     Dosage: 4.5 MG, DAILY (2 TABLETS IN AM AND 1 TABLET IN PM FOURTH DAY)
  42. DECADRON [Concomitant]
     Active Substance: DEXAMETHASONE
     Dosage: 3 MG, DAILY (1 TABLET IN AM AND 1 IN PM ON THE FIFTH DAY)
  43. PEPCID [Concomitant]
     Active Substance: FAMOTIDINE
     Dosage: 40 MG, DAILY
     Route: 048
  44. PRINIVIL [Concomitant]
     Active Substance: LISINOPRIL
     Dosage: 10 MG, DAILY
     Route: 048
  45. PROAIR RESPICLICK [Concomitant]
     Active Substance: ALBUTEROL SULFATE
     Dosage: 2 DF, AS NEEDED (INHALE 2 PUFFS BY MOUTH EVERY 4 HOURS IF NEEDED)
     Route: 055
  46. MOBIC [Concomitant]
     Active Substance: MELOXICAM
     Dosage: 75 MG, UNK (TK 1 TO 2 TB PO D)
     Route: 048
  47. PREGABALIN. [Concomitant]
     Active Substance: PREGABALIN
     Dosage: UNK
  48. BUTRANS [Concomitant]
     Active Substance: BUPRENORPHINE
     Dosage: 1 DF, WEEKLY (10 MCG/HOUR 1 PATCH EVERY SEVEN DAYS)
     Route: 062
  49. AMBIEN [Concomitant]
     Active Substance: ZOLPIDEM TARTRATE
     Indication: SLEEP DISORDER
     Dosage: 10 MG, 1X/DAY
     Route: 048
  50. DECADRON [Concomitant]
     Active Substance: DEXAMETHASONE
     Dosage: 6 MG, DAILY (2 TABLETS IN AM AND 2 TABLETS IN PM 3RD DAY)
  51. TYLENOL WITH CODEINE [Concomitant]
     Active Substance: ACETAMINOPHEN\CODEINE PHOSPHATE
     Dosage: UNK, AS NEEDED (CODEINE PHOSPHATE: 30 MG/PARACETAMOL: 300 MG, TAKE 1 TO 2 TABLET EVERY 4 TO 6 HRS)
     Route: 048

REACTIONS (1)
  - Tremor [Unknown]
